FAERS Safety Report 11226772 (Version 2)
Quarter: 2020Q1

REPORT INFORMATION
  Report Type: Spontaneous
  Country: US (occurrence: US)
  Receive Date: 20150630
  Receipt Date: 20200206
  Transmission Date: 20200409
  Serious: No
  Sender: FDA-Public Use
  Company Number: US-SA-2015SA049651

PATIENT
  Age: 43 Year
  Sex: Female

DRUGS (2)
  1. AUBAGIO [Suspect]
     Active Substance: TERIFLUNOMIDE
     Indication: MULTIPLE SCLEROSIS
     Dosage: 7 MG,QD
     Route: 048
     Dates: start: 20150401
  2. AUBAGIO [Suspect]
     Active Substance: TERIFLUNOMIDE
     Indication: PRODUCT USED FOR UNKNOWN INDICATION
     Dosage: 14 MG, QD
     Route: 048

REACTIONS (2)
  - Chills [Unknown]
  - Pyrexia [Unknown]

NARRATIVE: CASE EVENT DATE: 20150401
